FAERS Safety Report 10343248 (Version 4)
Quarter: 2014Q3

REPORT INFORMATION
  Report Type: Spontaneous
  Country: US (occurrence: None)
  Receive Date: 20140723
  Receipt Date: 20140915
  Transmission Date: 20150326
  Serious: Yes (Other)
  Sender: FDA-Public Use
  Company Number: 2014-US-008780

PATIENT
  Age: 47 Year
  Sex: Female
  Weight: 45.3 kg

DRUGS (8)
  1. FOLIC ACID (FOLIC ACID) [Concomitant]
     Active Substance: FOLIC ACID
  2. AMPHETAMINE SALTS (AMFETAMINE SULFATE) [Concomitant]
  3. XYREM [Suspect]
     Active Substance: SODIUM OXYBATE
     Indication: CATAPLEXY
     Route: 048
     Dates: start: 201303
  4. CITALOPRAM (CITALOPRAM HYDROBROMIDE) [Concomitant]
  5. POTASSIUM (POTASSIUM) [Concomitant]
     Active Substance: POTASSIUM
  6. DEXTROAMPHETAMINE (DEXAMFETAMINE SULFATE) [Concomitant]
  7. XYREM [Suspect]
     Active Substance: SODIUM OXYBATE
     Indication: NARCOLEPSY
     Route: 048
     Dates: start: 201303
  8. OMEPRAZOLE. [Concomitant]
     Active Substance: OMEPRAZOLE

REACTIONS (14)
  - Alopecia [None]
  - Arthralgia [None]
  - Drug ineffective [None]
  - Insomnia [None]
  - Facial pain [None]
  - Tremor [None]
  - Hypertension [None]
  - Abasia [None]
  - Movement disorder [None]
  - Erythema [None]
  - Intentional product misuse [None]
  - Pain in extremity [None]
  - Asthenia [None]
  - Pain [None]

NARRATIVE: CASE EVENT DATE: 2013
